FAERS Safety Report 15361831 (Version 3)
Quarter: 2018Q3

REPORT INFORMATION
  Report Type: Spontaneous
  Country: PL (occurrence: PL)
  Receive Date: 20180907
  Receipt Date: 20180928
  Transmission Date: 20181010
  Serious: Yes (Hospitalization)
  Sender: FDA-Public Use
  Company Number: PL-PFIZER INC-2018356590

PATIENT
  Age: 27 Year
  Sex: Female

DRUGS (2)
  1. PREGABALIN. [Suspect]
     Active Substance: PREGABALIN
     Dosage: 3000 MG, DAILY
  2. TRAMADOL. [Concomitant]
     Active Substance: TRAMADOL
     Dosage: 750 MG, DAILY

REACTIONS (2)
  - Overdose [Unknown]
  - Drug abuse [Unknown]
